FAERS Safety Report 21887600 (Version 1)
Quarter: 2023Q1

REPORT INFORMATION
  Report Type: Spontaneous
  Country: IT (occurrence: IT)
  Receive Date: 20230120
  Receipt Date: 20230120
  Transmission Date: 20230418
  Serious: Yes (Other)
  Sender: FDA-Public Use
  Company Number: IT-002147023-NVSC2023IT006394

PATIENT
  Sex: Male

DRUGS (6)
  1. MYCOPHENOLATE MOFETIL [Suspect]
     Active Substance: MYCOPHENOLATE MOFETIL
     Indication: Lung disorder
     Dosage: 50 MG/KG, QD
     Route: 065
     Dates: start: 202212
  2. MYCOPHENOLATE MOFETIL [Suspect]
     Active Substance: MYCOPHENOLATE MOFETIL
     Indication: Still^s disease
  3. ANAKINRA [Suspect]
     Active Substance: ANAKINRA
     Indication: Lung disorder
     Dosage: 4 MG/KG, QD
     Route: 065
     Dates: start: 202110
  4. ANAKINRA [Suspect]
     Active Substance: ANAKINRA
     Indication: Still^s disease
  5. CYCLOSPORINE [Suspect]
     Active Substance: CYCLOSPORINE
     Indication: Lung disorder
     Dosage: 3.6 MG/KG, QD
     Route: 065
     Dates: start: 202204
  6. CYCLOSPORINE [Suspect]
     Active Substance: CYCLOSPORINE
     Indication: Still^s disease

REACTIONS (7)
  - Lung disorder [Unknown]
  - Condition aggravated [Unknown]
  - Multifocal fibrosclerosis [Unknown]
  - Clubbing [Unknown]
  - Interleukin level increased [Unknown]
  - Therapeutic product effect incomplete [Unknown]
  - Off label use [Unknown]

NARRATIVE: CASE EVENT DATE: 20221001
